FAERS Safety Report 6651936-2 (Version None)
Quarter: 2010Q1

REPORT INFORMATION
  Report Type: 
  Country: None (occurrence: None)
  Receive Date: 20100325
  Receipt Date: 20100324
  Transmission Date: 20100710
  Serious: Yes (Other)
  Sender: FDA-Public Use
  Company Number: IT-ROXANE LABORATORIES, INC.-2009-DE-04984GD

PATIENT
  Age: 24 Year
  Sex: Female

DRUGS (2)
  1. MORPHINE [Suspect]
  2. GAMMA-HYDROXYBUTYRATE [Suspect]

REACTIONS (6)
  - ACCIDENTAL EXPOSURE [None]
  - CONFUSIONAL STATE [None]
  - EXCORIATION [None]
  - HEADACHE [None]
  - NAUSEA [None]
  - VICTIM OF SEXUAL ABUSE [None]
